FAERS Safety Report 17622671 (Version 25)
Quarter: 2025Q1

REPORT INFORMATION
  Report Type: Report from Study
  Country: US (occurrence: US)
  Receive Date: 20200403
  Receipt Date: 20250320
  Transmission Date: 20250409
  Serious: Yes (Hospitalization, Other)
  Sender: TAKEDA
  Company Number: US-SHIRE-US202012166

PATIENT
  Age: 72 Year
  Sex: Female
  Weight: 68 kg

DRUGS (57)
  1. HUMAN IMMUNOGLOBULIN G\HYALURONIDASE RECOMBINANT HUMAN [Suspect]
     Active Substance: HUMAN IMMUNOGLOBULIN G\HYALURONIDASE (HUMAN RECOMBINANT)
     Indication: Immunodeficiency common variable
     Dosage: 40 GRAM, Q4WEEKS
     Dates: start: 20151215
  2. HUMAN IMMUNOGLOBULIN G\HYALURONIDASE RECOMBINANT HUMAN [Suspect]
     Active Substance: HUMAN IMMUNOGLOBULIN G\HYALURONIDASE (HUMAN RECOMBINANT)
     Dosage: 40 GRAM, Q4WEEKS
     Dates: start: 20151217
  3. HUMAN IMMUNOGLOBULIN G\HYALURONIDASE RECOMBINANT HUMAN [Suspect]
     Active Substance: HUMAN IMMUNOGLOBULIN G\HYALURONIDASE (HUMAN RECOMBINANT)
     Dosage: 40 GRAM, Q4WEEKS
     Dates: start: 20151225
  4. CUVITRU [Suspect]
     Active Substance: HUMAN IMMUNOGLOBULIN G
     Indication: Immunodeficiency common variable
     Dosage: 15 GRAM, Q2WEEKS
     Dates: start: 20240220
  5. AMLODIPINE [Suspect]
     Active Substance: AMLODIPINE BESYLATE
     Indication: Product used for unknown indication
  6. EPINEPHRINE [Concomitant]
     Active Substance: EPINEPHRINE
  7. ACETAMINOPHEN [Concomitant]
     Active Substance: ACETAMINOPHEN
  8. DIPHENHYDRAMINE [Concomitant]
     Active Substance: DIPHENHYDRAMINE
  9. MINOXIDIL [Concomitant]
     Active Substance: MINOXIDIL
  10. FINASTERIDE [Concomitant]
     Active Substance: FINASTERIDE
  11. GABAPENTIN [Concomitant]
     Active Substance: GABAPENTIN
  12. VITAMIN C [Concomitant]
     Active Substance: ASCORBIC ACID
  13. VITAMIN D3 [Concomitant]
     Active Substance: CHOLECALCIFEROL
  14. MAGNESIUM [Concomitant]
     Active Substance: MAGNESIUM
  15. POTASSIUM CHLORIDE [Concomitant]
     Active Substance: POTASSIUM CHLORIDE
  16. AMITRIPTYLINE [Concomitant]
     Active Substance: AMITRIPTYLINE
  17. AMITIZA [Concomitant]
     Active Substance: LUBIPROSTONE
  18. ADVAIR HFA [Concomitant]
     Active Substance: FLUTICASONE PROPIONATE\SALMETEROL XINAFOATE
  19. METOPROLOL [Concomitant]
     Active Substance: METOPROLOL
  20. IRBESARTAN AND HYDROCHLOROTHIAZIDE [Concomitant]
     Active Substance: HYDROCHLOROTHIAZIDE\IRBESARTAN
  21. AMLODIPINE;ATORVASTATIN [Concomitant]
  22. ZETIA [Concomitant]
     Active Substance: EZETIMIBE
  23. NITROGLYCERIN [Concomitant]
     Active Substance: NITROGLYCERIN
  24. ZYRTEC [Concomitant]
     Active Substance: CETIRIZINE HYDROCHLORIDE
  25. LIPITOR [Concomitant]
     Active Substance: ATORVASTATIN CALCIUM
  26. PROMETHAZINE [Concomitant]
     Active Substance: PROMETHAZINE HYDROCHLORIDE
  27. AMBIEN [Concomitant]
     Active Substance: ZOLPIDEM TARTRATE
  28. LOVAZA [Concomitant]
     Active Substance: OMEGA-3-ACID ETHYL ESTERS
  29. DIAZEPAM [Concomitant]
     Active Substance: DIAZEPAM
  30. NEXIUM [Concomitant]
     Active Substance: ESOMEPRAZOLE MAGNESIUM
  31. ASPIRIN [Concomitant]
     Active Substance: ASPIRIN
  32. DYMISTA [Concomitant]
     Active Substance: AZELASTINE HYDROCHLORIDE\FLUTICASONE PROPIONATE
  33. PAIN EASE [Concomitant]
     Active Substance: CAMPHOR OIL\MENTHOL\METHYL SALICYLATE
  34. IPRATROPIUM BROMIDE [Concomitant]
     Active Substance: IPRATROPIUM BROMIDE
  35. POTASSIUM [Concomitant]
     Active Substance: POTASSIUM
  36. FLUTICASONE PROPIONATE [Concomitant]
     Active Substance: FLUTICASONE PROPIONATE
  37. EZETIMIBE [Concomitant]
     Active Substance: EZETIMIBE
  38. OMEPRAZOLE [Concomitant]
     Active Substance: OMEPRAZOLE
  39. VITAMIN E [Concomitant]
     Active Substance: .ALPHA.-TOCOPHEROL
  40. METOPROLOL TARTRATE [Concomitant]
     Active Substance: METOPROLOL TARTRATE
  41. AZELASTINE HYDROCHLORIDE [Concomitant]
     Active Substance: AZELASTINE HYDROCHLORIDE
  42. XIIDRA [Concomitant]
     Active Substance: LIFITEGRAST
  43. SODIUM CHLORIDE [Concomitant]
     Active Substance: SODIUM CHLORIDE
  44. EUCRISA [Concomitant]
     Active Substance: CRISABOROLE
  45. Omega [Concomitant]
  46. ATORVASTATIN [Concomitant]
     Active Substance: ATORVASTATIN
  47. AMLODIPINE BESYLATE [Concomitant]
     Active Substance: AMLODIPINE BESYLATE
  48. BRYHALI [Concomitant]
     Active Substance: HALOBETASOL PROPIONATE
  49. CETIRIZINE HYDROCHLORIDE [Concomitant]
     Active Substance: CETIRIZINE HYDROCHLORIDE
  50. ATORVASTATIN CALCIUM [Concomitant]
     Active Substance: ATORVASTATIN CALCIUM
  51. IRBESARTAN [Concomitant]
     Active Substance: IRBESARTAN
  52. PROMETHAZINE HYDROCHLORIDE [Concomitant]
     Active Substance: PROMETHAZINE HYDROCHLORIDE
  53. DIPHENHYDRAMINE HYDROCHLORIDE [Concomitant]
     Active Substance: DIPHENHYDRAMINE HYDROCHLORIDE
  54. AZITHROMYCIN [Concomitant]
     Active Substance: AZITHROMYCIN
  55. VALTREX [Concomitant]
     Active Substance: VALACYCLOVIR HYDROCHLORIDE
  56. AMITRIPTYLINE HYDROCHLORIDE [Concomitant]
     Active Substance: AMITRIPTYLINE HYDROCHLORIDE
  57. ASPIRIN [Concomitant]
     Active Substance: ASPIRIN

REACTIONS (37)
  - Arthritis [Unknown]
  - Renal impairment [Unknown]
  - Pneumonia bacterial [Unknown]
  - Renal disorder [Unknown]
  - Depression [Not Recovered/Not Resolved]
  - Stress [Not Recovered/Not Resolved]
  - Death of relative [Unknown]
  - Infusion site scar [Unknown]
  - Trigger finger [Unknown]
  - Illness [Recovering/Resolving]
  - Nasopharyngitis [Unknown]
  - Psychomotor hyperactivity [Unknown]
  - Infusion related reaction [Unknown]
  - Body height decreased [Unknown]
  - Infusion site discharge [Unknown]
  - Weight decreased [Unknown]
  - Product dose omission issue [Unknown]
  - Sinusitis [Unknown]
  - Multiple allergies [Unknown]
  - Feeling abnormal [Not Recovered/Not Resolved]
  - Pain [Recovered/Resolved]
  - Respiratory tract infection [Unknown]
  - Blood pressure decreased [Unknown]
  - Heart rate increased [Recovered/Resolved]
  - Eczema [Unknown]
  - Musculoskeletal stiffness [Unknown]
  - Asthenia [Unknown]
  - Blood pressure increased [Recovered/Resolved]
  - Malaise [Unknown]
  - Chills [Unknown]
  - Tremor [Recovering/Resolving]
  - Dizziness [Unknown]
  - Fatigue [Unknown]
  - Infusion site pain [Unknown]
  - Dyspnoea [Unknown]
  - Pyrexia [Unknown]
  - Headache [Recovered/Resolved]

NARRATIVE: CASE EVENT DATE: 20210122
